FAERS Safety Report 15618746 (Version 1)
Quarter: 2018Q4

REPORT INFORMATION
  Report Type: Spontaneous
  Country: US (occurrence: US)
  Receive Date: 20181113
  Receipt Date: 20181113
  Transmission Date: 20190205
  Serious: No
  Sender: FDA-Public Use
  Company Number: None

PATIENT
  Age: 47 Year
  Sex: Female
  Weight: 65.25 kg

DRUGS (1)
  1. AIMOVIG [Suspect]
     Active Substance: ERENUMAB-AOOE
     Indication: MIGRAINE

REACTIONS (7)
  - Visual impairment [None]
  - Fatigue [None]
  - Vision blurred [None]
  - Menstruation irregular [None]
  - Constipation [None]
  - Abnormal dreams [None]
  - Impaired healing [None]

NARRATIVE: CASE EVENT DATE: 20180917
